FAERS Safety Report 13510939 (Version 1)
Quarter: 2017Q2

REPORT INFORMATION
  Report Type: Spontaneous
  Country: US (occurrence: US)
  Receive Date: 20170503
  Receipt Date: 20170503
  Transmission Date: 20170830
  Serious: No
  Sender: FDA-Public Use
  Company Number: US-AMGEN-USASP2017030314

PATIENT
  Sex: Male

DRUGS (5)
  1. IMLYGIC [Suspect]
     Active Substance: TALIMOGENE LAHERPAREPVEC
     Dosage: 0.75 ML, Q2WK (10 TO THE 8TH STRENGTH)
     Route: 065
     Dates: start: 201702, end: 201702
  2. IMLYGIC [Suspect]
     Active Substance: TALIMOGENE LAHERPAREPVEC
     Dosage: 0.5 ML, Q2WK (10 TO THE 8TH STRENGTH)
     Route: 065
     Dates: start: 20170223
  3. IMLYGIC [Suspect]
     Active Substance: TALIMOGENE LAHERPAREPVEC
     Indication: MALIGNANT MELANOMA
     Dosage: UNK, (10 TO THE 6TH STRENGTH)
     Route: 065
  4. IMLYGIC [Suspect]
     Active Substance: TALIMOGENE LAHERPAREPVEC
     Dosage: 1 ML, Q2WK (10 TO THE 8TH STRENGTH)
     Route: 065
     Dates: start: 201701, end: 201701
  5. IMLYGIC [Suspect]
     Active Substance: TALIMOGENE LAHERPAREPVEC
     Dosage: 0.5 ML, Q2WK (10 TO THE 8TH STRENGTH)
     Route: 065
     Dates: start: 201701, end: 201701

REACTIONS (1)
  - Neuropathy peripheral [Recovered/Resolved]

NARRATIVE: CASE EVENT DATE: 201701
